FAERS Safety Report 11238568 (Version 2)
Quarter: 2016Q3

REPORT INFORMATION
  Report Type: Spontaneous
  Country: CA (occurrence: CA)
  Receive Date: 20150706
  Receipt Date: 20160726
  Transmission Date: 20161109
  Serious: Yes (Other)
  Sender: FDA-Public Use
  Company Number: CA-GILEAD-2014-0116980

PATIENT
  Age: 61 Year
  Sex: Female

DRUGS (3)
  1. PEGASYS [Suspect]
     Active Substance: PEGINTERFERON ALFA-2A
     Indication: CHRONIC HEPATITIS C
     Dosage: 180 ?G, UNK
     Route: 058
     Dates: start: 20140702, end: 20140924
  2. SOVALDI [Suspect]
     Active Substance: SOFOSBUVIR
     Indication: CHRONIC HEPATITIS C
     Dosage: 400 MG, QD
     Route: 048
     Dates: start: 20140702, end: 20140924
  3. COPEGUS [Suspect]
     Active Substance: RIBAVIRIN
     Indication: CHRONIC HEPATITIS C
     Dosage: 1200 MG, QD
     Route: 048
     Dates: start: 20140702, end: 20140924

REACTIONS (6)
  - Skin irritation [Unknown]
  - Lip dry [Unknown]
  - Cheilitis [Unknown]
  - Hepatic enzyme increased [Not Recovered/Not Resolved]
  - Pain [Unknown]
  - Dry skin [Unknown]
